FAERS Safety Report 9373827 (Version 2)
Quarter: 2013Q3

REPORT INFORMATION
  Report Type: Spontaneous
  Country: US (occurrence: US)
  Receive Date: 20130628
  Receipt Date: 20130827
  Transmission Date: 20140515
  Serious: Yes (Death, Hospitalization)
  Sender: FDA-Public Use
  Company Number: US-AMGEN-USASP2013044038

PATIENT
  Age: 64 Year
  Sex: Male

DRUGS (1)
  1. SENSIPAR [Suspect]
     Indication: PRODUCT USED FOR UNKNOWN INDICATION
     Route: 065

REACTIONS (12)
  - Cerebral arteriosclerosis [Unknown]
  - Tibia fracture [Unknown]
  - Fibula fracture [Unknown]
  - Convulsion [Unknown]
  - Acute myocardial infarction [Fatal]
  - Cardiac arrest [Fatal]
  - Respiratory arrest [Fatal]
  - Cardiac failure congestive [Unknown]
  - Pleural effusion [Unknown]
  - Hypoxic-ischaemic encephalopathy [Unknown]
  - Disseminated intravascular coagulation [Unknown]
  - Bacteraemia [Unknown]
